FAERS Safety Report 5114480-X (Version None)
Quarter: 2006Q3

REPORT INFORMATION
  Report Type: 
  Country: None (occurrence: None)
  Receive Date: 20060802
  Receipt Date: 20060426
  Transmission Date: 20061208
  Serious: Yes (Hospitalization, Other)
  Sender: FDA-Public Use
  Company Number: 200612999US

PATIENT
  Age: 62 Year
  Sex: Female
  Weight: 53.18 kg

DRUGS (3)
  1. KETEK [Suspect]
     Indication: SINUSITIS
     Dates: start: 20050101
  2. KETEK [Suspect]
     Indication: SINUSITIS
     Dates: start: 20060101
  3. DECONGESTANT [Concomitant]

REACTIONS (11)
  - CANDIDIASIS [None]
  - DIPLOPIA [None]
  - DRUG INEFFECTIVE [None]
  - DYSPHAGIA [None]
  - DYSPNOEA [None]
  - FUNGAL INFECTION [None]
  - GASTROINTESTINAL CANDIDIASIS [None]
  - IMMUNE SYSTEM DISORDER [None]
  - MYASTHENIA GRAVIS [None]
  - VISION BLURRED [None]
  - VISUAL DISTURBANCE [None]
